FAERS Safety Report 9224384 (Version 1)
Quarter: 2013Q2

REPORT INFORMATION
  Report Type: Spontaneous
  Country: US (occurrence: None)
  Receive Date: 20130409
  Receipt Date: 20130409
  Transmission Date: 20140414
  Serious: Yes (Other)
  Sender: FDA-Public Use
  Company Number: None

PATIENT
  Age: 59 Year
  Sex: Male
  Weight: 149.69 kg

DRUGS (1)
  1. DICLOFENAC SODIUIM [Suspect]
     Indication: ARTHRITIS
     Dosage: BY MOUTH
     Dates: start: 20130207

REACTIONS (8)
  - Diarrhoea [None]
  - Dizziness [None]
  - Flatulence [None]
  - Dyspepsia [None]
  - Abdominal discomfort [None]
  - Depression [None]
  - Mood altered [None]
  - Weight increased [None]
